FAERS Safety Report 8065129-8 (Version None)
Quarter: 2012Q1

REPORT INFORMATION
  Report Type: 
  Country: None (occurrence: None)
  Receive Date: 20120117
  Receipt Date: 20120109
  Transmission Date: 20120608
  Serious: Yes (Other)
  Sender: FDA-Public Use
  Company Number: TPA2011A07717

PATIENT
  Age: 70 Year
  Sex: Male
  Weight: 87.9978 kg

DRUGS (3)
  1. ACTOS [Suspect]
     Indication: TYPE 2 DIABETES MELLITUS
     Dosage: 30 MG 45 MG 15 MG
     Dates: start: 20080401, end: 20081001
  2. ACTOS [Suspect]
     Indication: TYPE 2 DIABETES MELLITUS
     Dosage: 30 MG 45 MG 15 MG
     Dates: start: 20100801, end: 20111001
  3. ACTOS [Suspect]
     Indication: TYPE 2 DIABETES MELLITUS
     Dosage: 30 MG 45 MG 15 MG
     Dates: start: 20081001, end: 20090201

REACTIONS (1)
  - BLADDER TRANSITIONAL CELL CARCINOMA [None]
